FAERS Safety Report 16497649 (Version 8)
Quarter: 2020Q1

REPORT INFORMATION
  Report Type: Spontaneous
  Country: AR (occurrence: AR)
  Receive Date: 20190628
  Receipt Date: 20200305
  Transmission Date: 20200409
  Serious: No
  Sender: FDA-Public Use
  Company Number: AR-MYLANLABS-2017M1062936

PATIENT
  Age: 35 Year
  Sex: Male

DRUGS (1)
  1. LAPENAX [Suspect]
     Active Substance: CLOZAPINE
     Indication: BORDERLINE PERSONALITY DISORDER
     Dosage: 350 MILLIGRAM, QD
     Dates: start: 20140101

REACTIONS (5)
  - Product use in unapproved indication [Not Recovered/Not Resolved]
  - Leukocytosis [Not Recovered/Not Resolved]
  - Eosinophil count increased [Recovering/Resolving]
  - Neutrophilia [Not Recovered/Not Resolved]
  - Lymphocyte count decreased [Not Recovered/Not Resolved]

NARRATIVE: CASE EVENT DATE: 20140101
